FAERS Safety Report 6026296-0 (Version None)
Quarter: 2008Q4

REPORT INFORMATION
  Report Type: 
  Country: None (occurrence: None)
  Receive Date: 20081222
  Receipt Date: 20081113
  Transmission Date: 20090506
  Serious: No
  Sender: FDA-Public Use
  Company Number: US-WYE-H06840808

PATIENT
  Sex: Female
  Weight: 94.43 kg

DRUGS (8)
  1. PRISTIQ [Suspect]
     Indication: ANXIETY
     Dosage: 100 MG 1X PER 1 DAY, ORAL; 50 MG 1X PER 1 DAY, ORAL
     Route: 048
     Dates: start: 20081001, end: 20081108
  2. PRISTIQ [Suspect]
     Indication: DEPRESSION
     Dosage: 100 MG 1X PER 1 DAY, ORAL; 50 MG 1X PER 1 DAY, ORAL
     Route: 048
     Dates: start: 20081001, end: 20081108
  3. PRISTIQ [Suspect]
     Indication: ANXIETY
     Dosage: 100 MG 1X PER 1 DAY, ORAL; 50 MG 1X PER 1 DAY, ORAL
     Route: 048
     Dates: start: 20081109
  4. PRISTIQ [Suspect]
     Indication: DEPRESSION
     Dosage: 100 MG 1X PER 1 DAY, ORAL; 50 MG 1X PER 1 DAY, ORAL
     Route: 048
     Dates: start: 20081109
  5. BUSPAR [Concomitant]
  6. TOPROL-XL [Concomitant]
  7. NEXIUM [Concomitant]
  8. ACTOS [Concomitant]

REACTIONS (1)
  - HEADACHE [None]
